FAERS Safety Report 4999596-0 (Version None)
Quarter: 2006Q2

REPORT INFORMATION
  Report Type: 
  Country: None (occurrence: None)
  Receive Date: 20060509
  Receipt Date: 20060427
  Transmission Date: 20061013
  Serious: Yes (Hospitalization)
  Sender: FDA-Public Use
  Company Number: MIN-00032

PATIENT
  Age: 13 Year
  Sex: Male

DRUGS (4)
  1. MINOCYCLINE HCL [Suspect]
     Indication: HYDROCEPHALUS
     Dosage: IMPREGNATED VENTRICULOS. CATH
     Route: 042
  2. ROCEPHIN [Concomitant]
  3. VANCOMYCIN [Concomitant]
  4. RIFAMPIN (MINOCYCLINE) [Concomitant]

REACTIONS (1)
  - MENINGITIS EOSINOPHILIC [None]
